FAERS Safety Report 9452822 (Version 2)
Quarter: 2013Q3

REPORT INFORMATION
  Report Type: Report from Study
  Country: US (occurrence: US)
  Receive Date: 20130812
  Receipt Date: 20130911
  Transmission Date: 20140515
  Serious: Yes (Other)
  Sender: FDA-Public Use
  Company Number: PHEH2013US016861

PATIENT
  Age: 86 Year
  Sex: Female

DRUGS (4)
  1. AMLODIPINE, VALSARTAN [Suspect]
     Dosage: UNK UKN, UNK
     Route: 048
  2. EXFORGE [Suspect]
     Indication: HYPERTENSION
     Dosage: UNK UKN, UNK
  3. EXFORGE [Suspect]
     Dosage: 1 DF, (VALS 160 MG / AMLO 5 MG) BID
     Route: 048
  4. ATENOLOL [Concomitant]
     Dosage: 25 MG, BID
     Route: 048

REACTIONS (3)
  - Cardiac flutter [Recovered/Resolved]
  - Palpitations [Recovered/Resolved]
  - Blood pressure increased [Not Recovered/Not Resolved]
